FAERS Safety Report 7421661-9 (Version None)
Quarter: 2011Q2

REPORT INFORMATION
  Report Type: 
  Country: None (occurrence: None)
  Receive Date: 20110418
  Receipt Date: 20110405
  Transmission Date: 20111010
  Serious: Yes (Hospitalization, Other)
  Sender: FDA-Public Use
  Company Number: JP-JNJFOC-20100705668

PATIENT
  Sex: Female
  Weight: 58 kg

DRUGS (11)
  1. BONALON [Concomitant]
     Indication: OSTEOPOROSIS
     Route: 048
  2. REMICADE [Suspect]
     Indication: RHEUMATOID ARTHRITIS
     Route: 042
  3. KENALOG [Concomitant]
  4. REMICADE [Suspect]
     Dosage: 28 INFUSIONS ON UNSPECIFIED DATES
     Route: 042
  5. PREDNISOLONE [Concomitant]
     Indication: RHEUMATOID ARTHRITIS
     Route: 048
  6. METHOTREXATE [Suspect]
     Indication: RHEUMATOID ARTHRITIS
     Route: 048
  7. RANITIDINE HYDROCHLORIDE [Concomitant]
     Indication: GASTRITIS
     Route: 048
  8. REMICADE [Suspect]
     Route: 042
  9. REMICADE [Suspect]
     Dosage: DOSES 1 TO 29
     Route: 042
  10. ETODOLAC [Concomitant]
     Indication: RHEUMATOID ARTHRITIS
     Route: 048
  11. ALDIOXA [Concomitant]
     Indication: GASTRITIS
     Route: 048

REACTIONS (2)
  - APHTHOUS STOMATITIS [None]
  - TONGUE NEOPLASM MALIGNANT STAGE UNSPECIFIED [None]
